FAERS Safety Report 17129487 (Version 5)
Quarter: 2020Q2

REPORT INFORMATION
  Report Type: Spontaneous
  Country: US (occurrence: US)
  Receive Date: 20191209
  Receipt Date: 20200604
  Transmission Date: 20200713
  Serious: No
  Sender: FDA-Public Use
  Company Number: US-PFIZER INC-2019527448

PATIENT
  Age: 66 Year
  Sex: Female
  Weight: 52.62 kg

DRUGS (3)
  1. IBRANCE [Suspect]
     Active Substance: PALBOCICLIB
     Indication: BREAST CANCER FEMALE
     Dosage: 125 MG, CYCLIC ( ONCE DAILY FOR 21 DAYS ON, 7 DAYS OFF)
     Route: 048
  2. ADVIL [IBUPROFEN] [Concomitant]
     Active Substance: IBUPROFEN
     Dosage: UNK
  3. IBRANCE [Suspect]
     Active Substance: PALBOCICLIB
     Dosage: 100 MG, CYCLIC ((DAILY FOR 21 DAYS)
     Route: 048
     Dates: start: 20191120

REACTIONS (6)
  - Asthenia [Unknown]
  - Fatigue [Unknown]
  - Immune system disorder [Unknown]
  - Nausea [Unknown]
  - Full blood count decreased [Unknown]
  - Platelet count decreased [Unknown]

NARRATIVE: CASE EVENT DATE: 2019
